FAERS Safety Report 21270852 (Version 1)
Quarter: 2022Q3

REPORT INFORMATION
  Report Type: Report from Study
  Country: FR (occurrence: FR)
  Receive Date: 20220830
  Receipt Date: 20220830
  Transmission Date: 20221026
  Serious: Yes (Death, Hospitalization, Other)
  Sender: FDA-Public Use
  Company Number: FR-BRISTOL-MYERS SQUIBB COMPANY-2022-096070

PATIENT
  Age: 70 Year
  Sex: Male

DRUGS (1)
  1. NIVOLUMAB [Suspect]
     Active Substance: NIVOLUMAB
     Indication: Non-small cell lung cancer
     Route: 065

REACTIONS (5)
  - General physical health deterioration [Fatal]
  - Respiratory distress [Recovered/Resolved]
  - Malignant neoplasm progression [Fatal]
  - Pyrexia [Unknown]
  - Pleurisy [Unknown]

NARRATIVE: CASE EVENT DATE: 20220324
